FAERS Safety Report 11357697 (Version 1)
Quarter: 2015Q3

REPORT INFORMATION
  Report Type: Spontaneous
  Country: US (occurrence: US)
  Receive Date: 20150803
  Receipt Date: 20150803
  Transmission Date: 20151125
  Serious: Yes (Other)
  Sender: FDA-Public Use
  Company Number: US-ELI_LILLY_AND_COMPANY-US201111000671

PATIENT
  Sex: Female

DRUGS (14)
  1. TRIHEXYPHENIDYL [Concomitant]
     Active Substance: TRIHEXYPHENIDYL
  2. OXYBUTYNIN [Concomitant]
     Active Substance: OXYBUTYNIN
  3. ZYPREXA [Suspect]
     Active Substance: OLANZAPINE
     Dosage: 10 MG, QD
  4. TRAZODONE [Concomitant]
     Active Substance: TRAZODONE HYDROCHLORIDE
  5. DIVALPROEX SODIUM. [Concomitant]
     Active Substance: DIVALPROEX SODIUM
  6. DIAZEPAM. [Concomitant]
     Active Substance: DIAZEPAM
  7. ZYPREXA [Suspect]
     Active Substance: OLANZAPINE
     Dosage: 20 MG, QD
  8. SERTRALINE [Concomitant]
     Active Substance: SERTRALINE HYDROCHLORIDE
  9. OMEPRAZOLE. [Concomitant]
     Active Substance: OMEPRAZOLE
  10. ZYPREXA [Suspect]
     Active Substance: OLANZAPINE
     Dosage: 15 MG, QD
  11. ZOLPIDEM [Concomitant]
     Active Substance: ZOLPIDEM\ZOLPIDEM TARTRATE
  12. ZYPREXA [Suspect]
     Active Substance: OLANZAPINE
     Indication: BIPOLAR DISORDER
     Dosage: 10 MG, QD
  13. ZYPREXA [Suspect]
     Active Substance: OLANZAPINE
     Indication: BIPOLAR DISORDER
     Dosage: 5 MG, QD
     Dates: start: 201102
  14. ZYPREXA [Suspect]
     Active Substance: OLANZAPINE
     Dosage: 10 MG, QD

REACTIONS (20)
  - Wrong technique in product usage process [Unknown]
  - Adverse event [Unknown]
  - Psychotic disorder [Unknown]
  - Somnolence [Unknown]
  - Gastrooesophageal reflux disease [Unknown]
  - Paranoia [Unknown]
  - Suicidal ideation [Unknown]
  - Hypervigilance [Unknown]
  - Tachyphrenia [Unknown]
  - Stress [Unknown]
  - Nightmare [Unknown]
  - Incorrect dose administered [Unknown]
  - Drug ineffective [Unknown]
  - Respiratory tract infection [Unknown]
  - Thirst [Unknown]
  - Rhinorrhoea [Unknown]
  - Anxiety [Unknown]
  - Memory impairment [Unknown]
  - Agitation [Unknown]
  - Insomnia [Unknown]

NARRATIVE: CASE EVENT DATE: 2011
